FAERS Safety Report 13843780 (Version 3)
Quarter: 2017Q4

REPORT INFORMATION
  Report Type: Spontaneous
  Country: NO (occurrence: NO)
  Receive Date: 20170808
  Receipt Date: 20171103
  Transmission Date: 20180320
  Serious: Yes (Hospitalization, Other)
  Sender: FDA-Public Use
  Company Number: NO-ACCORD-056867

PATIENT
  Age: 40 Year
  Sex: Male

DRUGS (6)
  1. METHOTREXATE. [Suspect]
     Active Substance: METHOTREXATE
     Indication: PSORIASIS
     Dates: start: 199802, end: 199809
  2. NEOTIGASON [Suspect]
     Active Substance: ACITRETIN
     Indication: PSORIASIS
     Dates: start: 199902, end: 199909
  3. SANDIMMUN [Suspect]
     Active Substance: CYCLOSPORINE
     Indication: PSORIASIS
     Dosage: FOR A SHORT PERIOD OF TIME
     Dates: start: 2001, end: 2001
  4. STELARA [Suspect]
     Active Substance: USTEKINUMAB
     Indication: PSORIASIS
     Dosage: 1 ML EVERY 10TH WEEK ?ALSO RECEIVED FROM 2010 (ONE IN 3 MONTHS)
     Route: 058
     Dates: start: 200911
  5. REMICADE [Suspect]
     Active Substance: INFLIXIMAB
     Indication: PSORIASIS
     Dosage: DOSAGE FORM: LYOPHILIZED POWDER?ALSO RECEIVED FROM 2003 TO 2005 AND MAR-2009 TO APR-2009
     Route: 042
     Dates: start: 1999
  6. ENBREL [Suspect]
     Active Substance: ETANERCEPT
     Indication: PSORIASIS
     Dates: start: 2005, end: 2009

REACTIONS (11)
  - Asthma [Unknown]
  - Osteonecrosis [Not Recovered/Not Resolved]
  - Migraine [Unknown]
  - Osteoarthritis [Unknown]
  - Psoriasis [Unknown]
  - Sepsis [Unknown]
  - Drug effect decreased [Unknown]
  - Rheumatoid arthritis [Unknown]
  - Ileus [Unknown]
  - Osteonecrosis [Not Recovered/Not Resolved]
  - Volvulus [Unknown]

NARRATIVE: CASE EVENT DATE: 201602
